FAERS Safety Report 15450607 (Version 2)
Quarter: 2018Q4

REPORT INFORMATION
  Report Type: Report from Study
  Country: US (occurrence: US)
  Receive Date: 20181001
  Receipt Date: 20181026
  Transmission Date: 20190204
  Serious: Yes (Other)
  Sender: FDA-Public Use
  Company Number: PHEH2018US039300

PATIENT
  Sex: Male

DRUGS (2)
  1. ENTRESTO [Suspect]
     Active Substance: SACUBITRIL\VALSARTAN
     Dosage: UNK, BID( HALF A PILL IN AM HALF A PILL IN THE PM)
     Route: 048
  2. ENTRESTO [Suspect]
     Active Substance: SACUBITRIL\VALSARTAN
     Indication: PRODUCT USED FOR UNKNOWN INDICATION
     Dosage: UNK, BID
     Route: 048

REACTIONS (15)
  - Loss of consciousness [Unknown]
  - Hyperhidrosis [Unknown]
  - Dyskinesia [Unknown]
  - Balance disorder [Unknown]
  - Product prescribing error [Unknown]
  - Dysstasia [Unknown]
  - Gait disturbance [Unknown]
  - Nasopharyngitis [Unknown]
  - Decreased appetite [Unknown]
  - Wrong technique in product usage process [Unknown]
  - Dizziness postural [Unknown]
  - Weight decreased [Unknown]
  - Vision blurred [Unknown]
  - Insomnia [Unknown]
  - Dyspnoea [Unknown]
